FAERS Safety Report 9598343 (Version 1)
Quarter: 2013Q4

REPORT INFORMATION
  Report Type: Spontaneous
  Country: US (occurrence: US)
  Receive Date: 20131004
  Receipt Date: 20131004
  Transmission Date: 20140711
  Serious: No
  Sender: FDA-Public Use
  Company Number: US-AMGEN-USASP2013023303

PATIENT
  Age: 58 Year
  Sex: Female
  Weight: 48.07 kg

DRUGS (10)
  1. ENBREL [Suspect]
     Indication: PRODUCT USED FOR UNKNOWN INDICATION
     Dosage: 25 MG, ADMINISTER 2 INJECTIONS ONCE A WEEK
     Route: 058
  2. RESTASIS [Concomitant]
     Dosage: 0.05 %, UNK
  3. CELEBREX [Concomitant]
     Dosage: 50 MG, UNK
  4. PREDNISONE [Concomitant]
     Dosage: 1 MG, UNK
  5. NEXIUM                             /01479302/ [Concomitant]
     Dosage: 20 MG, UNK
  6. AMITRIPTYLINE [Concomitant]
     Dosage: 25 MG, UNK
  7. FISH OIL [Concomitant]
     Dosage: UNK
  8. CALCIUM [Concomitant]
     Dosage: 500 UNK, UNK
  9. SALAGEN [Concomitant]
     Dosage: 5 MG, UNK
  10. MULTIVITAMINS, PLAIN [Concomitant]
     Dosage: UNK

REACTIONS (2)
  - Glossodynia [Unknown]
  - Dry mouth [Unknown]
